FAERS Safety Report 7290161-1 (Version None)
Quarter: 2011Q1

REPORT INFORMATION
  Report Type: 
  Country: None (occurrence: None)
  Receive Date: 20110214
  Receipt Date: 20110201
  Transmission Date: 20110831
  Serious: Yes (Hospitalization, Disabling)
  Sender: FDA-Public Use
  Company Number: PHHY2010CL77541

PATIENT
  Age: 83 Year
  Sex: Male

DRUGS (2)
  1. ALLOPURINOL [Concomitant]
  2. TAREG D [Suspect]
     Indication: HYPERTENSION
     Dosage: 160/12.5 MG (1 TABLET PER DAY)
     Route: 048

REACTIONS (5)
  - WOUND [None]
  - URINARY RETENTION [None]
  - HAEMATOMA [None]
  - PROSTATIC DISORDER [None]
  - ROAD TRAFFIC ACCIDENT [None]
